FAERS Safety Report 7602534-5 (Version None)
Quarter: 2011Q3

REPORT INFORMATION
  Report Type: 
  Country: None (occurrence: None)
  Receive Date: 20110707
  Receipt Date: 20110401
  Transmission Date: 20111222
  Serious: Yes (Hospitalization)
  Sender: FDA-Public Use
  Company Number: US-CYPR-2011-000008

PATIENT
  Sex: Female
  Weight: 62.6 kg

DRUGS (14)
  1. CLOPIDOGREL [Suspect]
     Indication: ANTIPLATELET THERAPY
     Dosage: (75 MG QD ORAL)
     Route: 048
     Dates: start: 20101102
  2. CO-ENZYME [Concomitant]
  3. FOSAMAX [Concomitant]
  4. SPIRIVA [Concomitant]
  5. SINGULAIR [Concomitant]
  6. ATORVASTATIN [Concomitant]
  7. CYPHER STENT [Concomitant]
  8. ALBUTEROL SULFATE AUTOHALER [Concomitant]
  9. VALSARTAN [Concomitant]
  10. THEOPHYLLINE [Concomitant]
  11. NORVASC [Concomitant]
  12. HABITROL [Concomitant]
  13. QVAR 40 [Concomitant]
  14. ASPIRIN [Suspect]
     Indication: ANTIPLATELET THERAPY
     Dosage: (325 MG QD ORAL)
     Route: 048
     Dates: start: 20091013

REACTIONS (1)
  - CALCULUS URETERIC [None]
